FAERS Safety Report 20045735 (Version 1)
Quarter: 2021Q4

REPORT INFORMATION
  Report Type: Report from Study
  Country: US (occurrence: US)
  Receive Date: 20211108
  Receipt Date: 20211108
  Transmission Date: 20220303
  Serious: Yes (Hospitalization)
  Sender: FDA-Public Use
  Company Number: US-ABBVIE-21K-163-4147070-00

PATIENT
  Sex: Male

DRUGS (1)
  1. RINVOQ [Suspect]
     Active Substance: UPADACITINIB
     Indication: Rheumatoid arthritis
     Route: 048
     Dates: start: 20210916, end: 20210930

REACTIONS (8)
  - Nephrolithiasis [Unknown]
  - Impaired healing [Unknown]
  - Skin abrasion [Unknown]
  - Mobility decreased [Unknown]
  - Muscular weakness [Unknown]
  - Muscle atrophy [Unknown]
  - Balance disorder [Unknown]
  - Fall [Unknown]

NARRATIVE: CASE EVENT DATE: 20210101
